FAERS Safety Report 11563822 (Version 1)
Quarter: 2015Q3

REPORT INFORMATION
  Report Type: Spontaneous
  Country: US (occurrence: US)
  Receive Date: 20150928
  Receipt Date: 20150928
  Transmission Date: 20151125
  Serious: No
  Sender: FDA-Public Use
  Company Number: US-WATSON-2015-08978

PATIENT

DRUGS (1)
  1. GABAPENTIN (AELLC) [Suspect]
     Active Substance: GABAPENTIN
     Indication: PARAESTHESIA
     Route: 065

REACTIONS (2)
  - Intentional product misuse [Unknown]
  - Dizziness [None]
